FAERS Safety Report 6298331-6 (Version None)
Quarter: 2009Q3

REPORT INFORMATION
  Report Type: 
  Country: None (occurrence: None)
  Receive Date: 20090805
  Receipt Date: 20090730
  Transmission Date: 20100115
  Serious: Yes (Other)
  Sender: FDA-Public Use
  Company Number: US-SANOFI-SYNTHELABO-A03200903034

PATIENT
  Sex: Male
  Weight: 95.3 kg

DRUGS (19)
  1. GLUCOPHAGE [Concomitant]
     Indication: DIABETES MELLITUS
     Route: 065
     Dates: start: 20080305
  2. LASIX [Concomitant]
     Indication: FLUID RETENTION
     Route: 065
     Dates: start: 20071130
  3. ZYLOPRIM [Concomitant]
     Indication: BLOOD URIC ACID
     Route: 048
     Dates: start: 20080220
  4. ZYLOPRIM [Concomitant]
     Dosage: UNK
     Route: 065
     Dates: start: 20080105, end: 20080101
  5. SINGULAIR [Concomitant]
     Indication: CHRONIC OBSTRUCTIVE PULMONARY DISEASE
     Route: 048
     Dates: start: 20070817
  6. SINGULAIR [Concomitant]
     Indication: EMPHYSEMA
     Route: 048
     Dates: start: 20070817
  7. SPIRIVA [Concomitant]
     Indication: CHRONIC OBSTRUCTIVE PULMONARY DISEASE
     Route: 055
     Dates: start: 20060301
  8. SPIRIVA [Concomitant]
     Indication: EMPHYSEMA
     Route: 055
     Dates: start: 20060301
  9. ADVAIR HFA [Concomitant]
     Indication: CHRONIC OBSTRUCTIVE PULMONARY DISEASE
     Route: 055
     Dates: start: 20070817
  10. ADVAIR HFA [Concomitant]
     Indication: EMPHYSEMA
     Route: 055
     Dates: start: 20070817
  11. LIPITOR [Concomitant]
     Indication: ATRIAL FIBRILLATION
     Route: 065
     Dates: start: 20080912
  12. LISINOPRIL [Concomitant]
     Indication: HYPERTENSION
     Route: 065
     Dates: start: 20070901
  13. NORVASC [Concomitant]
     Indication: HYPERTENSION
     Route: 048
     Dates: start: 20090131
  14. TENORMIN [Concomitant]
     Indication: HYPERTENSION
     Route: 065
  15. COUMADIN [Concomitant]
     Indication: ATRIAL FIBRILLATION
     Dosage: 7.5 MG ON TUESDAY AND FRIDAY, 5 MG DAILY ALL OTHER DAYS
     Route: 048
     Dates: start: 20070605
  16. UROXATRAL [Suspect]
     Indication: PROSTATOMEGALY
     Route: 048
     Dates: start: 20090625, end: 20090704
  17. UROXATRAL [Suspect]
     Indication: MICTURITION DISORDER
     Route: 048
     Dates: start: 20090625, end: 20090704
  18. FISH OIL [Concomitant]
     Indication: ATRIAL FIBRILLATION
     Route: 048
  19. VITAMIN B6 [Concomitant]
     Indication: DRUG USE FOR UNKNOWN INDICATION
     Route: 048
     Dates: end: 20090704

REACTIONS (6)
  - ATRIAL FIBRILLATION [None]
  - BRONCHITIS [None]
  - DRUG HYPERSENSITIVITY [None]
  - DYSPNOEA [None]
  - FATIGUE [None]
  - HYPERTENSION [None]
